FAERS Safety Report 5671518-9 (Version None)
Quarter: 2008Q1

REPORT INFORMATION
  Report Type: 
  Country: None (occurrence: None)
  Receive Date: 20080318
  Receipt Date: 20080222
  Transmission Date: 20080703
  Serious: No
  Sender: FDA-Public Use
  Company Number: US-BOEHRINGER INGELHEIM GMBH, GERMANY-2008-BP-00283BP

PATIENT
  Sex: Male

DRUGS (6)
  1. SPIRIVA [Suspect]
     Indication: CHRONIC OBSTRUCTIVE PULMONARY DISEASE
     Route: 055
     Dates: start: 20060101
  2. FINASTERIDE [Concomitant]
  3. ATENOLOL [Concomitant]
  4. ASPIRIN [Concomitant]
  5. LANTUS [Concomitant]
  6. SIMVASTATIN [Concomitant]

REACTIONS (1)
  - COUGH [None]
